FAERS Safety Report 4444842-5 (Version None)
Quarter: 2004Q3

REPORT INFORMATION
  Report Type: 
  Country: None (occurrence: None)
  Receive Date: 20040903
  Receipt Date: 20040826
  Transmission Date: 20050211
  Serious: No
  Sender: FDA-Public Use
  Company Number: 2004PK01436

PATIENT
  Age: 33 Year
  Sex: Female

DRUGS (5)
  1. SEROQUEL [Suspect]
     Indication: MAJOR DEPRESSION
     Dosage: 700 MG DAILY PO
     Route: 048
     Dates: start: 20040211, end: 20040219
  2. SIRDALUD [Suspect]
     Indication: MAJOR DEPRESSION
     Dosage: 4 MG DAILY PO
     Route: 048
     Dates: start: 20040101, end: 20040220
  3. ENTUMIN [Suspect]
     Indication: SLEEP DISORDER
     Dosage: 80 MG DAILY PO
     Route: 048
     Dates: start: 20040213, end: 20040218
  4. ORFIRIL [Suspect]
     Indication: MAJOR DEPRESSION
     Dosage: 1 G DAILY PO
     Route: 048
     Dates: start: 20040115, end: 20040302
  5. LORAZEPAM [Suspect]
     Indication: MAJOR DEPRESSION
     Dosage: 4.5 MG DAILY PO
     Route: 048
     Dates: start: 20040101, end: 20040304

REACTIONS (3)
  - CONFUSIONAL STATE [None]
  - COORDINATION ABNORMAL [None]
  - DRUG INTERACTION [None]
